FAERS Safety Report 8952486 (Version 1)
Quarter: 2012Q4

REPORT INFORMATION
  Report Type: 
  Country: US (occurrence: US)
  Receive Date: 20121205
  Receipt Date: 20121205
  Transmission Date: 20130627
  Serious: No
  Sender: FDA-Public Use
  Company Number: US-009507513-1212USA001067

PATIENT
  Age: 55 Year
  Sex: Female

DRUGS (3)
  1. PROVENTIL [Suspect]
     Indication: CHRONIC OBSTRUCTIVE PULMONARY DISEASE
     Dosage: 2 DF, qid, PRN
     Route: 055
     Dates: start: 2003
  2. PROVENTIL [Suspect]
     Indication: ASTHMA
  3. PROVENTIL [Suspect]
     Indication: EMPHYSEMA

REACTIONS (4)
  - Dyspnoea [Recovering/Resolving]
  - Hyperventilation [Recovering/Resolving]
  - Dyspnoea [Recovering/Resolving]
  - Underdose [Unknown]
